FAERS Safety Report 9549812 (Version 3)
Quarter: 2013Q4

REPORT INFORMATION
  Report Type: Spontaneous
  Country: GR (occurrence: GR)
  Receive Date: 20130924
  Receipt Date: 20131101
  Transmission Date: 20140711
  Serious: Yes (Hospitalization)
  Sender: FDA-Public Use
  Company Number: GR-OPTIMER-20130348

PATIENT
  Age: 7 Year
  Sex: Female

DRUGS (2)
  1. DIFICLIR [Suspect]
     Indication: CLOSTRIDIAL INFECTION
     Dosage: 50 MG, BID
     Route: 048
     Dates: start: 20130830, end: 20130915
  2. DIFICLIR [Suspect]
     Dosage: 100 MG, BID
     Route: 048
     Dates: start: 20130916, end: 201309

REACTIONS (5)
  - Posterior reversible encephalopathy syndrome [Recovered/Resolved]
  - Cerebral haemorrhage [Recovered/Resolved]
  - Off label use [Unknown]
  - Clostridium difficile infection [Unknown]
  - Disease recurrence [Unknown]
